FAERS Safety Report 6552844-8 (Version None)
Quarter: 2010Q1

REPORT INFORMATION
  Report Type: 
  Country: None (occurrence: None)
  Receive Date: 20100122
  Receipt Date: 20100114
  Transmission Date: 20100710
  Serious: Yes (Death)
  Sender: FDA-Public Use
  Company Number: AR 02/10

PATIENT
  Age: 16 Year
  Sex: Female

DRUGS (4)
  1. ALBUMIN (HUMAN) [Suspect]
     Indication: MYASTHENIA GRAVIS
     Dosage: 2.5DF (DAY 1); (DAY 2 TO 5)
  2. PREDNISOLONE [Concomitant]
  3. PYRIDOSTIGMINE BROMIDE [Concomitant]
  4. ALBUMIN (HUMAN) [Suspect]

REACTIONS (10)
  - AIR EMBOLISM [None]
  - CARDIAC ARREST [None]
  - CIRCULATORY COLLAPSE [None]
  - DISSEMINATED INTRAVASCULAR COAGULATION [None]
  - IMMUNE SYSTEM DISORDER [None]
  - PNEUMONIA [None]
  - PULMONARY OEDEMA [None]
  - SYSTEMIC INFLAMMATORY RESPONSE SYNDROME [None]
  - TRANSFUSION-RELATED ACUTE LUNG INJURY [None]
  - TRICUSPID VALVE INCOMPETENCE [None]
